FAERS Safety Report 24746959 (Version 1)
Quarter: 2024Q4

REPORT INFORMATION
  Report Type: Spontaneous
  Country: DE (occurrence: DE)
  Receive Date: 20241218
  Receipt Date: 20241218
  Transmission Date: 20250114
  Serious: Yes (Life-Threatening, Other)
  Sender: SAMSUNG BIOEPIS
  Company Number: DE-SAMSUNG BIOEPIS-SB-2024-38250

PATIENT
  Age: 18 Year

DRUGS (1)
  1. INFLIXIMAB [Suspect]
     Active Substance: INFLIXIMAB
     Indication: Product used for unknown indication
     Dosage: VIAL, 4TH DOSE;
     Route: 042

REACTIONS (2)
  - Anaphylactic shock [Unknown]
  - Skin reaction [Unknown]

NARRATIVE: CASE EVENT DATE: 20240523
